FAERS Safety Report 10542801 (Version 1)
Quarter: 2014Q4

REPORT INFORMATION
  Report Type: Spontaneous
  Country: US (occurrence: None)
  Receive Date: 20141023
  Receipt Date: 20141023
  Transmission Date: 20150529
  Serious: Yes (Life-Threatening, Hospitalization)
  Sender: FDA-Public Use
  Company Number: 54973 AE 1565

PATIENT
  Age: 2 Month
  Sex: Male

DRUGS (1)
  1. BABY TEETHING [Suspect]
     Active Substance: ARABICA COFFEE BEAN\ATROPA BELLADONNA\CALCIUM PHOSPHATE\CHAMOMILE
     Indication: TEETHING
     Dosage: 2-3 TABS SLQD PRNX1 1/2 MOS

REACTIONS (8)
  - Pyrexia [None]
  - Seizure [None]
  - Fatigue [None]
  - Head injury [None]
  - Eye movement disorder [None]
  - Dry mouth [None]
  - Rib fracture [None]
  - Cerebral haemorrhage [None]

NARRATIVE: CASE EVENT DATE: 201407
